FAERS Safety Report 19177849 (Version 2)
Quarter: 2021Q2

REPORT INFORMATION
  Report Type: Spontaneous
  Country: US (occurrence: US)
  Receive Date: 20210426
  Receipt Date: 20210520
  Transmission Date: 20210717
  Serious: No
  Sender: FDA-Public Use
  Company Number: US-ASTRAZENECA-2021A322349

PATIENT
  Sex: Female

DRUGS (1)
  1. BREZTRI AEROSPHERE [Suspect]
     Active Substance: BUDESONIDE\FORMOTEROL\GLYCOPYRRONIUM
     Indication: CHRONIC OBSTRUCTIVE PULMONARY DISEASE
     Dosage: 160?9?4.8 MCG, 2 PUFFS, TWICE A DAY
     Route: 055
     Dates: start: 202102

REACTIONS (6)
  - Decreased appetite [Unknown]
  - Musculoskeletal stiffness [Unknown]
  - Back pain [Unknown]
  - Drug delivery system malfunction [Unknown]
  - Dyspnoea [Unknown]
  - Wrong technique in device usage process [Unknown]
